FAERS Safety Report 6483832-8 (Version None)
Quarter: 2009Q4

REPORT INFORMATION
  Report Type: 
  Country: None (occurrence: None)
  Receive Date: 20091209
  Receipt Date: 20091130
  Transmission Date: 20100525
  Serious: Yes (Hospitalization)
  Sender: FDA-Public Use
  Company Number: US-ASTRAZENECA-2009SE29599

PATIENT
  Age: 80 Year
  Sex: Male
  Weight: 74.8 kg

DRUGS (3)
  1. CRESTOR [Suspect]
     Route: 048
  2. ARICEPT [Concomitant]
  3. NOMEDA [Concomitant]

REACTIONS (4)
  - ASTHENIA [None]
  - HYPOAESTHESIA [None]
  - PARAESTHESIA [None]
  - SPINAL COLUMN STENOSIS [None]
